FAERS Safety Report 9616873 (Version 2)
Quarter: 2013Q4

REPORT INFORMATION
  Report Type: Spontaneous
  Country: GB (occurrence: GB)
  Receive Date: 20131011
  Receipt Date: 20131107
  Transmission Date: 20140711
  Serious: Yes (Hospitalization, Other)
  Sender: FDA-Public Use
  Company Number: GB-PFIZER INC-2013286040

PATIENT
  Sex: Female

DRUGS (4)
  1. FLUOROURACIL [Suspect]
     Dosage: 4MG/KG UNIT DOSE FOR 7 CYCLES
     Dates: start: 20130528
  2. IRINOTECAN HCL [Suspect]
     Dosage: 4MG/KG UNIT DOSE FOR 7 CYCLES
     Dates: start: 20130528
  3. FOLINIC ACID [Suspect]
     Dosage: 4MG/KG UNIT DOSE FOR 7 CYCLES
     Route: 065
     Dates: start: 20130528
  4. ZALTRAP [Suspect]
     Dosage: 4MG/KG UNIT DOSE FOR 7 CYCLES
     Dates: start: 20130528

REACTIONS (5)
  - Neutropenic sepsis [Unknown]
  - Pancreatitis [Unknown]
  - Lower respiratory tract infection [Unknown]
  - Malaise [Unknown]
  - Vomiting [Unknown]
